FAERS Safety Report 6171725-5 (Version None)
Quarter: 2009Q2

REPORT INFORMATION
  Report Type: 
  Country: None (occurrence: None)
  Receive Date: 20090429
  Receipt Date: 20090420
  Transmission Date: 20091009
  Serious: Yes (Other)
  Sender: FDA-Public Use
  Company Number: B0571505A

PATIENT
  Sex: Female

DRUGS (4)
  1. FLUTICASONE PROPIONATE [Suspect]
     Indication: ASTHMA
     Route: 055
  2. VENTOLIN [Concomitant]
     Indication: ASTHMA
     Route: 055
  3. BRONCHODUAL [Concomitant]
     Indication: ASTHMA
     Route: 055
  4. ATACAND [Concomitant]
     Indication: HYPERTENSION
     Dosage: 8MG PER DAY
     Route: 048

REACTIONS (2)
  - HAEMATOMA [None]
  - SKIN ATROPHY [None]
